FAERS Safety Report 5084994-X (Version None)
Quarter: 2006Q3

REPORT INFORMATION
  Report Type: 
  Country: None (occurrence: None)
  Receive Date: 20060821
  Receipt Date: 20060718
  Transmission Date: 20061208
  Serious: Yes (Hospitalization, Other)
  Sender: FDA-Public Use
  Company Number: US-ABBOTT-06P-163-0338655-00

PATIENT
  Age: 71 Year
  Sex: Female

DRUGS (9)
  1. FENOFIBRATE [Suspect]
     Indication: MIXED HYPERLIPIDAEMIA
     Route: 048
     Dates: start: 20030825, end: 20031120
  2. FENOFIBRATE [Suspect]
     Route: 048
     Dates: start: 20030526, end: 20030824
  3. FENOFIBRATE [Suspect]
     Route: 048
     Dates: start: 20031209, end: 20040113
  4. EZETIMIBE [Suspect]
     Indication: MIXED HYPERLIPIDAEMIA
     Dates: start: 20030526, end: 20040113
  5. ACETYLSALICYLIC ACID SRT [Concomitant]
     Indication: DRUG USE FOR UNKNOWN INDICATION
     Dates: start: 19990101, end: 20031121
  6. CELECOXIB [Concomitant]
     Indication: DRUG USE FOR UNKNOWN INDICATION
     Dates: start: 19980601, end: 20031121
  7. CITALOPRAM HYDROBROMIDE [Concomitant]
     Indication: DRUG USE FOR UNKNOWN INDICATION
     Dates: start: 20000101, end: 20031221
  8. ESTRADIOL INJ [Concomitant]
     Indication: DRUG USE FOR UNKNOWN INDICATION
     Dates: start: 19981101
  9. OXAZEPAM [Concomitant]
     Indication: DRUG USE FOR UNKNOWN INDICATION
     Dates: start: 20031008, end: 20031220

REACTIONS (4)
  - CHOLECYSTITIS [None]
  - COLLAPSE OF LUNG [None]
  - LUNG CONSOLIDATION [None]
  - PLEURAL EFFUSION [None]
